FAERS Safety Report 19080942 (Version 1)
Quarter: 2021Q1

REPORT INFORMATION
  Report Type: Spontaneous
  Country: CN (occurrence: CN)
  Receive Date: 20210331
  Receipt Date: 20210331
  Transmission Date: 20210420
  Serious: Yes (Life-Threatening, Other)
  Sender: FDA-Public Use
  Company Number: CN-GE HEALTHCARE LIFE SCIENCES-2021CSU001322

PATIENT

DRUGS (2)
  1. OMNIPAQUE [Suspect]
     Active Substance: IOHEXOL
     Indication: COMPUTERISED TOMOGRAM ABDOMEN
     Dosage: UNKNOW DOSE AT THE RATE OF 3.0 ML/S, ONCE
     Route: 065
     Dates: start: 20210309, end: 20210309
  2. OMNIPAQUE [Suspect]
     Active Substance: IOHEXOL
     Indication: PRODUCT USED FOR UNKNOWN INDICATION

REACTIONS (9)
  - Muscular weakness [Unknown]
  - Sneezing [Unknown]
  - Chest discomfort [Unknown]
  - Palpitations [Recovered/Resolved]
  - Shock [Recovered/Resolved]
  - Vomiting [Recovered/Resolved]
  - Pallor [Unknown]
  - Pruritus [Recovered/Resolved]
  - Oedema [Unknown]

NARRATIVE: CASE EVENT DATE: 20210309
